FAERS Safety Report 24415036 (Version 1)
Quarter: 2024Q4

REPORT INFORMATION
  Report Type: Report from Study
  Country: US (occurrence: US)
  Receive Date: 20241009
  Receipt Date: 20241009
  Transmission Date: 20250115
  Serious: Yes (Hospitalization)
  Sender: ACCORD
  Company Number: US-Accord-449499

PATIENT
  Sex: Female

DRUGS (1)
  1. CLOZAPINE [Suspect]
     Active Substance: CLOZAPINE
     Indication: Product used for unknown indication
     Dosage: 100MG, THREE TIMES DAILY
     Route: 048

REACTIONS (4)
  - Tachycardia [Unknown]
  - Fall [Unknown]
  - Joint injury [Unknown]
  - Emotional distress [Unknown]
